FAERS Safety Report 13555624 (Version 2)
Quarter: 2017Q3

REPORT INFORMATION
  Report Type: Spontaneous
  Country: US (occurrence: US)
  Receive Date: 20170517
  Receipt Date: 20170814
  Transmission Date: 20171127
  Serious: Yes (Disabling, Other)
  Sender: FDA-Public Use
  Company Number: US-JNJFOC-20170507527

PATIENT
  Sex: Male
  Weight: 97.07 kg

DRUGS (1)
  1. DARZALEX [Suspect]
     Active Substance: DARATUMUMAB
     Indication: PLASMA CELL MYELOMA
     Route: 042

REACTIONS (3)
  - Infusion related reaction [Recovered/Resolved with Sequelae]
  - Bedridden [Unknown]
  - Arthralgia [Recovered/Resolved with Sequelae]
